FAERS Safety Report 18991117 (Version 2)
Quarter: 2021Q1

REPORT INFORMATION
  Report Type: Other
  Country: US (occurrence: US)
  Receive Date: 20210310
  Receipt Date: 20210331
  Transmission Date: 20210420
  Serious: Yes (Other)
  Sender: FDA-Public Use
  Company Number: US-ROCHE-2785881

PATIENT
  Age: 87 Year
  Sex: Female

DRUGS (9)
  1. METHOTREXATE. [Concomitant]
     Active Substance: METHOTREXATE
  2. RITUXIMAB. [Suspect]
     Active Substance: RITUXIMAB
     Indication: RHEUMATOID ARTHRITIS
     Route: 041
  3. ABATACEPT [Concomitant]
     Active Substance: ABATACEPT
  4. ETANERCEPT [Concomitant]
     Active Substance: ETANERCEPT
  5. CYCLOSPORINE. [Concomitant]
     Active Substance: CYCLOSPORINE
  6. ADALIMUMAB [Concomitant]
     Active Substance: ADALIMUMAB
  7. SULFASALAZINE. [Concomitant]
     Active Substance: SULFASALAZINE
  8. HYDROXYCHLOROQUINE [Concomitant]
     Active Substance: HYDROXYCHLOROQUINE
  9. PREDNISONE. [Concomitant]
     Active Substance: PREDNISONE

REACTIONS (1)
  - Pyoderma gangrenosum [Unknown]
